FAERS Safety Report 6244561-9 (Version None)
Quarter: 2009Q2

REPORT INFORMATION
  Report Type: 
  Country: None (occurrence: None)
  Receive Date: 20090625
  Receipt Date: 20090623
  Transmission Date: 20091009
  Serious: Yes (Hospitalization, Other)
  Sender: FDA-Public Use
  Company Number: US-BAYER-200921632NA

PATIENT
  Age: 28 Year
  Sex: Female
  Weight: 94 kg

DRUGS (3)
  1. MIRENA [Suspect]
     Indication: CONTRACEPTION
     Dosage: CONTINUOUS
     Route: 015
     Dates: start: 20090414, end: 20090513
  2. AZITHROMYCIN [Concomitant]
     Dosage: 250 MG 1ST DOSE PRIOR TO INSERTION AND 2ND DOSE POST INSERTION
  3. CLEOCIN [Concomitant]
     Indication: ENDODONTIC PROCEDURE

REACTIONS (2)
  - IUCD COMPLICATION [None]
  - UTERINE RUPTURE [None]
